FAERS Safety Report 12897959 (Version 1)
Quarter: 2016Q4

REPORT INFORMATION
  Report Type: Spontaneous
  Country: US (occurrence: US)
  Receive Date: 20161028
  Receipt Date: 20161028
  Transmission Date: 20170207
  Serious: Yes (Hospitalization)
  Sender: FDA-Public Use
  Company Number: None

PATIENT
  Age: 94 Year
  Sex: Male
  Weight: 61.1 kg

DRUGS (2)
  1. AMIODARONE [Suspect]
     Active Substance: AMIODARONE
     Indication: ATRIAL FIBRILLATION
     Route: 048
     Dates: start: 20160630, end: 20160814
  2. DIGOXIN. [Suspect]
     Active Substance: DIGOXIN
     Indication: ATRIAL FIBRILLATION
     Route: 048
     Dates: start: 20150713, end: 20160811

REACTIONS (10)
  - Toxicity to various agents [None]
  - Drug level above therapeutic [None]
  - Atrial fibrillation [None]
  - Lethargy [None]
  - Haematuria [None]
  - Dizziness [None]
  - Acute kidney injury [None]
  - Pneumonia [None]
  - Asthenia [None]
  - Hypothyroidism [None]

NARRATIVE: CASE EVENT DATE: 20160811
